FAERS Safety Report 6296065-5 (Version None)
Quarter: 2009Q3

REPORT INFORMATION
  Report Type: 
  Country: None (occurrence: None)
  Receive Date: 20090804
  Receipt Date: 20090730
  Transmission Date: 20100115
  Serious: Yes (Hospitalization)
  Sender: FDA-Public Use
  Company Number: AT-BRISTOL-MYERS SQUIBB COMPANY-14722243

PATIENT
  Age: 49 Year
  Sex: Female
  Weight: 64 kg

DRUGS (3)
  1. CETUXIMAB [Suspect]
     Indication: NON-SMALL CELL LUNG CANCER
     Dosage: CETUXIMAB 5 MG/ML,ALSO ADMINSTERED ON 21JUL09
     Route: 042
     Dates: start: 20090623, end: 20090728
  2. CISPLATIN [Suspect]
     Indication: NON-SMALL CELL LUNG CANCER
     Dosage: RECENT INF ON 15JUL09
     Route: 042
     Dates: end: 20090715
  3. TAXOTERE [Suspect]
     Indication: NON-SMALL CELL LUNG CANCER
     Dosage: REECENT INF ON 14JUL09
     Route: 042
     Dates: end: 20090714

REACTIONS (1)
  - SUBCLAVIAN VEIN THROMBOSIS [None]
